FAERS Safety Report 5269552-6 (Version None)
Quarter: 2007Q1

REPORT INFORMATION
  Report Type: 
  Country: None (occurrence: None)
  Receive Date: 20070320
  Receipt Date: 20070308
  Transmission Date: 20070707
  Serious: Yes (Other)
  Sender: FDA-Public Use
  Company Number: PHBS2007JP04340

PATIENT
  Age: 74 Year
  Sex: Male

DRUGS (2)
  1. DIOVAN [Suspect]
     Indication: HYPERTENSION
     Dosage: 80 MG, ONCE/SINGLE
     Route: 048
     Dates: start: 20070307, end: 20070307
  2. NORVASC [Concomitant]
     Indication: HYPERTENSION

REACTIONS (3)
  - ANAPHYLACTIC SHOCK [None]
  - FALL [None]
  - LOSS OF CONSCIOUSNESS [None]
